FAERS Safety Report 10787876 (Version 1)
Quarter: 2015Q1

REPORT INFORMATION
  Report Type: Spontaneous
  Country: US (occurrence: US)
  Receive Date: 20150212
  Receipt Date: 20150212
  Transmission Date: 20150721
  Serious: No
  Sender: FDA-Public Use
  Company Number: US-GLAXOSMITHKLINE-A0761199A

PATIENT

DRUGS (4)
  1. AVANDAMET [Suspect]
     Active Substance: METFORMIN HYDROCHLORIDE\ROSIGLITAZONE MALEATE
     Indication: TYPE 2 DIABETES MELLITUS
     Route: 048
     Dates: start: 20031124, end: 20041111
  2. ACTOS [Concomitant]
     Active Substance: PIOGLITAZONE HYDROCHLORIDE
  3. AVANDIA [Suspect]
     Active Substance: ROSIGLITAZONE MALEATE
     Indication: TYPE 2 DIABETES MELLITUS
     Route: 048
     Dates: start: 20061024, end: 20061124
  4. METFORMIN [Concomitant]
     Active Substance: METFORMIN HYDROCHLORIDE

REACTIONS (6)
  - Weight increased [Unknown]
  - Hypertension [Not Recovered/Not Resolved]
  - Dyspnoea [Unknown]
  - Vision blurred [Unknown]
  - Joint swelling [Unknown]
  - Chest pain [Unknown]

NARRATIVE: CASE EVENT DATE: 20080502
